FAERS Safety Report 18139007 (Version 1)
Quarter: 2020Q3

REPORT INFORMATION
  Report Type: Spontaneous
  Country: US (occurrence: US)
  Receive Date: 20200811
  Receipt Date: 20200811
  Transmission Date: 20201103
  Serious: Yes (Hospitalization)
  Sender: FDA-Public Use
  Company Number: None

PATIENT
  Age: 58 Year
  Sex: Female

DRUGS (3)
  1. XARELTO [Concomitant]
     Active Substance: RIVAROXABAN
  2. HUMIRA [Suspect]
     Active Substance: ADALIMUMAB
     Indication: RHEUMATOID ARTHRITIS
     Route: 058
     Dates: start: 20191205, end: 20200811
  3. METOPROTOL SUCCINATE [Concomitant]

REACTIONS (3)
  - Atrial fibrillation [None]
  - Heart disease congenital [None]
  - Cardiac failure [None]

NARRATIVE: CASE EVENT DATE: 20200724
